FAERS Safety Report 16801818 (Version 1)
Quarter: 2019Q3

REPORT INFORMATION
  Report Type: Spontaneous
  Country: US (occurrence: US)
  Receive Date: 20190912
  Receipt Date: 20190912
  Transmission Date: 20191005
  Serious: No
  Sender: FDA-Public Use
  Company Number: US-SA-2019SA251211

PATIENT
  Age: 79 Year
  Sex: Female

DRUGS (1)
  1. XYZAL ALLERGY 24HR [Suspect]
     Active Substance: LEVOCETIRIZINE DIHYDROCHLORIDE
     Indication: EOSINOPHILIC CELLULITIS
     Dosage: 5 UG, QD
     Route: 065

REACTIONS (4)
  - Fatigue [Unknown]
  - Memory impairment [Unknown]
  - Mass [Unknown]
  - Nasal oedema [Unknown]
